FAERS Safety Report 6969005-0 (Version None)
Quarter: 2010Q3

REPORT INFORMATION
  Report Type: 
  Country: None (occurrence: None)
  Receive Date: 20100903
  Receipt Date: 20100903
  Transmission Date: 20110219
  Serious: Yes (Life-Threatening)
  Sender: FDA-Public Use
  Company Number: None

PATIENT
  Sex: Female

DRUGS (1)
  1. AVELOX [Suspect]
     Indication: INFECTION
     Dosage: AVELOX 400 MG DAILY BY MOUTH
     Dates: start: 20100902, end: 20100902

REACTIONS (1)
  - ANAPHYLACTIC REACTION [None]
